FAERS Safety Report 10153722 (Version 1)
Quarter: 2014Q2

REPORT INFORMATION
  Report Type: Spontaneous
  Country: FR (occurrence: FR)
  Receive Date: 20140506
  Receipt Date: 20140506
  Transmission Date: 20141212
  Serious: Yes (Hospitalization, Disabling)
  Sender: FDA-Public Use
  Company Number: FR-ACCORD-023462

PATIENT
  Age: 51 Year
  Sex: Female
  Weight: 58 kg

DRUGS (7)
  1. OXYNORM [Concomitant]
     Dosage: 5 MG
     Route: 048
  2. ACCORD TOPOTECAN [Suspect]
     Indication: PRODUCT USED FOR UNKNOWN INDICATION
     Dosage: EXP: 04-15?RECEIVED ON DAY1, DAY8 AND DAY 15.
     Route: 042
     Dates: start: 20140225
  3. PARACETAMOL [Concomitant]
     Route: 048
     Dates: start: 20140402
  4. GLUCOSE/GLUCOSE MONOHYDRATE/GLUCOSE OXIDASE [Concomitant]
     Route: 042
  5. OMEPRAZOLE [Concomitant]
     Route: 048
     Dates: start: 20140402
  6. OXYCONTIN LP [Concomitant]
     Dosage: SUSTAINED RELEASE FILM-COATED TABLET
     Route: 048
     Dates: start: 20140402
  7. PREDNISONE [Concomitant]
     Route: 048
     Dates: start: 20140402

REACTIONS (1)
  - Bone marrow failure [Not Recovered/Not Resolved]
